FAERS Safety Report 21521463 (Version 3)
Quarter: 2023Q1

REPORT INFORMATION
  Report Type: Report from Study
  Country: CN (occurrence: CN)
  Receive Date: 20221028
  Receipt Date: 20230103
  Transmission Date: 20230417
  Serious: Yes (Hospitalization)
  Sender: FDA-Public Use
  Company Number: CN-JNJFOC-20221046916

PATIENT
  Age: 60 Year
  Sex: Male
  Weight: 51 kg

DRUGS (11)
  1. BEDAQUILINE [Suspect]
     Active Substance: BEDAQUILINE
     Indication: Tuberculosis
     Route: 048
     Dates: start: 20220813
  2. LEVOFLOXACIN [Suspect]
     Active Substance: LEVOFLOXACIN
     Indication: Tuberculosis
     Route: 065
     Dates: start: 20220813
  3. LINEZOLID [Suspect]
     Active Substance: LINEZOLID
     Indication: Tuberculosis
     Route: 065
     Dates: start: 20220813
  4. CYCLOSERINE [Suspect]
     Active Substance: CYCLOSERINE
     Indication: Tuberculosis
     Route: 065
     Dates: start: 20220813
  5. CLOFAZIMINE [Suspect]
     Active Substance: CLOFAZIMINE
     Indication: Tuberculosis
     Route: 065
     Dates: start: 20220813
  6. PROTIONAMIDE [Suspect]
     Active Substance: PROTIONAMIDE
     Indication: Tuberculosis
     Route: 065
  7. SODIUM DEOXYRIBONUCLEOTIDE [Concomitant]
     Indication: Anaemia
     Route: 065
     Dates: start: 20221021, end: 20221103
  8. SODIUM DEOXYRIBONUCLEOTIDE [Concomitant]
     Indication: Myelosuppression
  9. BCG POLYSACCHARIDE AND NUCLEIC ACID [Concomitant]
     Indication: Immunodeficiency
  10. SILYBIN MEGLUMINE [Concomitant]
     Indication: Prophylaxis
     Route: 065
  11. VITAMIN B6 [Concomitant]
     Active Substance: PYRIDOXINE HYDROCHLORIDE
     Indication: Prophylaxis
     Route: 065

REACTIONS (1)
  - Anaemia [Recovered/Resolved]

NARRATIVE: CASE EVENT DATE: 20221021
